FAERS Safety Report 10153543 (Version 2)
Quarter: 2014Q2

REPORT INFORMATION
  Report Type: Spontaneous
  Country: JP (occurrence: JP)
  Receive Date: 20140505
  Receipt Date: 20140505
  Transmission Date: 20141212
  Serious: Yes (Other)
  Sender: FDA-Public Use
  Company Number: PHHY2012JP047416

PATIENT
  Age: 21 Year
  Sex: Female

DRUGS (11)
  1. CLOZARIL [Suspect]
     Indication: SCHIZOPHRENIA
     Dosage: 12.5 MG, DAILY
     Route: 048
     Dates: start: 20120208
  2. CLOZARIL [Suspect]
     Dosage: 300 MG, DAILY
     Route: 048
     Dates: start: 20120307
  3. CLOZARIL [Suspect]
     Dosage: 450 MG, DAILY
     Route: 048
     Dates: start: 20120515
  4. CLOZARIL [Suspect]
     Dosage: 200 MG, DAILY
     Route: 048
     Dates: start: 20120602
  5. CLOZARIL [Suspect]
     Dosage: 350 MG, UNK
     Dates: start: 20120724
  6. RISPERIDONE [Suspect]
     Indication: SCHIZOPHRENIA
  7. ARIPIPRAZOLE [Suspect]
     Indication: SCHIZOPHRENIA
  8. OLANZAPINE [Suspect]
     Indication: SCHIZOPHRENIA
     Dosage: 30 MG, UNK
  9. BLONANSERIN [Suspect]
     Indication: SCHIZOPHRENIA
  10. QUETIAPINE [Suspect]
     Dosage: 800 MG, UNK
  11. VALPROIC ACID [Concomitant]

REACTIONS (2)
  - Convulsion [Recovering/Resolving]
  - Generalised tonic-clonic seizure [Unknown]
